FAERS Safety Report 8294923-3 (Version None)
Quarter: 2012Q2

REPORT INFORMATION
  Report Type: 
  Country: None (occurrence: None)
  Receive Date: 20120418
  Receipt Date: 20120410
  Transmission Date: 20120825
  Serious: Yes (Other)
  Sender: FDA-Public Use
  Company Number: US-ABBOTT-12P-163-0924042-00

PATIENT
  Age: 70 Year
  Sex: Male

DRUGS (2)
  1. CELEBREX [Concomitant]
     Indication: PRODUCT USED FOR UNKNOWN INDICATION
     Dates: end: 20120301
  2. HUMIRA [Suspect]
     Indication: RHEUMATOID ARTHRITIS
     Dates: start: 20050101, end: 20120301

REACTIONS (3)
  - PROSTATE CANCER [None]
  - IDIOPATHIC THROMBOCYTOPENIC PURPURA [None]
  - HYDROCELE [None]
